FAERS Safety Report 8079250-1 (Version None)
Quarter: 2012Q1

REPORT INFORMATION
  Report Type: 
  Country: None (occurrence: None)
  Receive Date: 20120128
  Receipt Date: 20110822
  Transmission Date: 20120608
  Serious: No
  Sender: FDA-Public Use
  Company Number: US-ABBOTT-11P-163-0848140-00

PATIENT
  Sex: Female
  Weight: 61.744 kg

DRUGS (3)
  1. CELEBREX [Concomitant]
     Indication: ARTHRITIS
  2. HUMIRA [Suspect]
     Indication: ARTHRITIS
     Dates: start: 20080729
  3. NIFEDIPINE [Concomitant]
     Indication: HYPERTENSION

REACTIONS (4)
  - BLADDER DISCOMFORT [None]
  - BACK PAIN [None]
  - CYSTITIS [None]
  - POLLAKIURIA [None]
